FAERS Safety Report 18346010 (Version 1)
Quarter: 2020Q4

REPORT INFORMATION
  Report Type: Spontaneous
  Country: US (occurrence: US)
  Receive Date: 20201005
  Receipt Date: 20201005
  Transmission Date: 20210114
  Serious: No
  Sender: FDA-Public Use
  Company Number: US-BAYER-2020-213896

PATIENT
  Age: 47 Year
  Sex: Female

DRUGS (4)
  1. ONE A DAY WOMEN^S PRENATAL ADVANCED - COMBI (MINERALS\VITAMINS) [Suspect]
     Active Substance: MINERALS\VITAMINS
     Indication: PRODUCT USED FOR UNKNOWN INDICATION
     Dosage: UNK
     Route: 048
  2. ONE A DAY WOMEN^S PRENATAL ADVANCED - COMBI (MINERALS\VITAMINS) [Suspect]
     Active Substance: MINERALS\VITAMINS
     Indication: PRODUCT USED FOR UNKNOWN INDICATION
     Dosage: UNK
  3. ALEVE [Suspect]
     Active Substance: NAPROXEN SODIUM
     Indication: PRODUCT USED FOR UNKNOWN INDICATION
     Dosage: 1 DF
  4. CITRACAL PETITES [Suspect]
     Active Substance: CALCIUM CITRATE
     Indication: PRODUCT USED FOR UNKNOWN INDICATION
     Dosage: 1 DF, QD
     Route: 048

REACTIONS (3)
  - Product contamination physical [Unknown]
  - Incorrect dose administered [None]
  - Tongue injury [Unknown]
